FAERS Safety Report 9402675 (Version 3)
Quarter: 2013Q4

REPORT INFORMATION
  Report Type: Spontaneous
  Country: DK (occurrence: DE)
  Receive Date: 20130716
  Receipt Date: 20131011
  Transmission Date: 20140711
  Serious: Yes (Hospitalization, Disabling, Other)
  Sender: FDA-Public Use
  Company Number: DE-FRI-1000046716

PATIENT
  Age: 0 Day
  Sex: Male
  Weight: 1.3 kg

DRUGS (6)
  1. CITALOPRAM [Suspect]
     Indication: ANXIETY DISORDER
     Dosage: 1 DF
     Route: 064
  2. KATADOLON [Suspect]
     Indication: RHEUMATIC DISORDER
     Dosage: 100 - 200 MG
     Route: 064
  3. KATADOLON [Suspect]
     Indication: OSTEOARTHRITIS
  4. TILIDINE [Suspect]
     Indication: ARTHROPATHY
     Dosage: 0.1429 DF
     Route: 064
  5. PANTOPRAZOL [Concomitant]
     Indication: DYSPEPSIA
     Dosage: 5.7143 MG
     Route: 064
  6. DIAZEPAM [Concomitant]
     Dosage: 8.5714 MG
     Route: 064

REACTIONS (17)
  - Congenital hydrocephalus [Not Recovered/Not Resolved]
  - Limb reduction defect [Not Recovered/Not Resolved]
  - Congenital pulmonary hypertension [Recovered/Resolved]
  - Neonatal respiratory failure [Recovered/Resolved]
  - Cardiac failure congestive [Recovered/Resolved]
  - Patent ductus arteriosus [Recovered/Resolved]
  - Atrial septal defect [Unknown]
  - Hyperbilirubinaemia neonatal [Recovered/Resolved]
  - Neonatal hyponatraemia [Not Recovered/Not Resolved]
  - Antithrombin III deficiency [Recovered/Resolved]
  - Neonatal cholestasis [Not Recovered/Not Resolved]
  - Thyroxine free decreased [Not Recovered/Not Resolved]
  - Umbilical hernia [Unknown]
  - Premature baby [Unknown]
  - Low birth weight baby [Unknown]
  - Small for dates baby [Unknown]
  - Foetal exposure during pregnancy [Unknown]
